FAERS Safety Report 19512501 (Version 1)
Quarter: 2021Q3

REPORT INFORMATION
  Report Type: Spontaneous
  Country: AU (occurrence: AU)
  Receive Date: 20210709
  Receipt Date: 20210709
  Transmission Date: 20211014
  Serious: Yes (Hospitalization, Other)
  Sender: FDA-Public Use
  Company Number: AU-PURDUE-USA-2021-0274135

PATIENT
  Sex: Female

DRUGS (2)
  1. NORSPAN [Suspect]
     Active Substance: BUPRENORPHINE
     Indication: PRODUCT USED FOR UNKNOWN INDICATION
     Dosage: 10 MG, SINGLE (STRENGTH 10 MG)
     Route: 048
     Dates: start: 20210513
  2. NORSPAN [Suspect]
     Active Substance: BUPRENORPHINE
     Dosage: UNK (STRENGTH 10 MG)
     Route: 062
     Dates: end: 20210513

REACTIONS (3)
  - Incorrect route of product administration [Unknown]
  - Hypoxia [Recovered/Resolved]
  - Hypoglycaemia [Recovered/Resolved]

NARRATIVE: CASE EVENT DATE: 20210513
